FAERS Safety Report 7069221-6 (Version None)
Quarter: 2010Q4

REPORT INFORMATION
  Report Type: 
  Country: None (occurrence: None)
  Receive Date: 20101028
  Receipt Date: 20101022
  Transmission Date: 20110411
  Serious: Yes (Hospitalization)
  Sender: FDA-Public Use
  Company Number: D0069210A

PATIENT
  Sex: Female

DRUGS (3)
  1. LAMICTAL [Suspect]
     Dosage: 100MG SEE DOSAGE TEXT
     Route: 048
     Dates: start: 20101021, end: 20101021
  2. FLUOXETINE HCL [Suspect]
     Dosage: 40MG SEE DOSAGE TEXT
     Route: 048
     Dates: start: 20101021, end: 20101021
  3. ABILIFY [Suspect]
     Dosage: 15MG SEE DOSAGE TEXT
     Route: 048
     Dates: start: 20101021, end: 20101021

REACTIONS (4)
  - CONVULSION [None]
  - INTENTIONAL OVERDOSE [None]
  - SOMNOLENCE [None]
  - SUICIDE ATTEMPT [None]
